FAERS Safety Report 5341215-8 (Version None)
Quarter: 2007Q2

REPORT INFORMATION
  Report Type: 
  Country: None (occurrence: None)
  Receive Date: 20070405
  Receipt Date: 20070111
  Transmission Date: 20071010
  Serious: No
  Sender: FDA-Public Use
  Company Number: US200701002347

PATIENT
  Age: 76 Year
  Sex: Female

DRUGS (12)
  1. CYMBALTA [Suspect]
     Indication: DEPRESSION
     Dosage: SEE IMAGE
     Route: 048
     Dates: end: 20070111
  2. CYMBALTA [Suspect]
     Indication: DEPRESSION
     Dosage: SEE IMAGE
     Route: 048
     Dates: start: 20061101
  3. SYNTHROID [Concomitant]
  4. GLIPIZIDE [Concomitant]
  5. NEURONTIN [Concomitant]
  6. NEXIUM [Concomitant]
  7. DILTIAZEM [Concomitant]
  8. ALTACE [Concomitant]
  9. TRAZODONE HCL [Concomitant]
  10. ZOCOR [Concomitant]
  11. OXYCONTIN [Concomitant]
  12. DIAZEPAM [Concomitant]

REACTIONS (6)
  - ASTHENIA [None]
  - FATIGUE [None]
  - IRRITABILITY [None]
  - MALAISE [None]
  - MEMORY IMPAIRMENT [None]
  - SOMNOLENCE [None]
